FAERS Safety Report 17362415 (Version 1)
Quarter: 2020Q1

REPORT INFORMATION
  Report Type: Spontaneous
  Country: ES (occurrence: ES)
  Receive Date: 20200203
  Receipt Date: 20200203
  Transmission Date: 20200409
  Serious: Yes (Other)
  Sender: FDA-Public Use
  Company Number: ES-FRESENIUS KABI-FK202000970

PATIENT
  Age: 17 Year

DRUGS (3)
  1. OXALIPLATIN (MANUFACTURER UNKNOWN) [Suspect]
     Active Substance: OXALIPLATIN
     Indication: NONGERMINOMATOUS GERM CELL TUMOUR OF THE CNS
     Route: 045
  2. GEMCITABINE. [Suspect]
     Active Substance: GEMCITABINE
     Indication: NONGERMINOMATOUS GERM CELL TUMOUR OF THE CNS
     Route: 065
  3. PACLITAXEL (MANUFACTURER UNKNOWN) [Suspect]
     Active Substance: PACLITAXEL
     Indication: NONGERMINOMATOUS GERM CELL TUMOUR OF THE CNS
     Route: 065

REACTIONS (2)
  - Haematotoxicity [Unknown]
  - Hepatotoxicity [Recovered/Resolved]
